FAERS Safety Report 9773282 (Version 1)
Quarter: 2013Q4

REPORT INFORMATION
  Report Type: Spontaneous
  Country: JP (occurrence: JP)
  Receive Date: 20131219
  Receipt Date: 20131219
  Transmission Date: 20140711
  Serious: Yes (Other)
  Sender: FDA-Public Use
  Company Number: JP-GLAXOSMITHKLINE-B0954329A

PATIENT
  Age: 69 Year
  Sex: Female

DRUGS (6)
  1. LAMICTAL [Suspect]
     Indication: DEPRESSION
     Route: 048
  2. LIMAS [Concomitant]
     Route: 048
  3. LEXAPRO [Concomitant]
     Route: 048
  4. RESLIN [Concomitant]
     Route: 048
  5. PARLODEL [Concomitant]
     Route: 048
  6. METHOTREXATE [Concomitant]
     Route: 048

REACTIONS (2)
  - Neuroleptic malignant syndrome [Unknown]
  - Musculoskeletal stiffness [Unknown]
